FAERS Safety Report 18226396 (Version 1)
Quarter: 2020Q3

REPORT INFORMATION
  Report Type: Spontaneous
  Country: CA (occurrence: CA)
  Receive Date: 20200903
  Receipt Date: 20200903
  Transmission Date: 20201103
  Serious: Yes (Other)
  Sender: FDA-Public Use
  Company Number: CA-009507513-2009CAN000669

PATIENT
  Age: 48 Year
  Sex: Male
  Weight: 69 kg

DRUGS (12)
  1. PMS?AZITHROMYCIN [Concomitant]
     Active Substance: AZITHROMYCIN ANHYDROUS
     Indication: PRODUCT USED FOR UNKNOWN INDICATION
     Dosage: DOSAGE FORM; NOT SPECIFIED
     Route: 065
  2. PREDNISONE. [Suspect]
     Active Substance: PREDNISONE
     Indication: PRODUCT USED FOR UNKNOWN INDICATION
     Dosage: DOSAGE FORM: NOT SPECIFIED
     Route: 065
  3. TIOTROPIUM BROMIDE [Suspect]
     Active Substance: TIOTROPIUM BROMIDE
     Indication: PRODUCT USED FOR UNKNOWN INDICATION
     Dosage: 5.0 DOSAGE FORMS 1 EVERY 1 DAYS
     Route: 065
  4. PULMICORT TURBUHALER [Suspect]
     Active Substance: BUDESONIDE
     Indication: PRODUCT USED FOR UNKNOWN INDICATION
     Dosage: DOSAGE FORM  NOT SPECIFIED
  5. NUCALA [Suspect]
     Active Substance: MEPOLIZUMAB
     Indication: ASTHMA
     Dosage: DOSAGE FORM; NOT REPORTED, 100.0 MILLIGRAM 1 EVERY 1 DAYS
     Route: 065
  6. SINGULAIR [Suspect]
     Active Substance: MONTELUKAST SODIUM
     Indication: PRODUCT USED FOR UNKNOWN INDICATION
     Dosage: DOSAGE FORM  NOT SPECIFIED
     Route: 065
  7. ALBUTEROL. [Suspect]
     Active Substance: ALBUTEROL
     Indication: PRODUCT USED FOR UNKNOWN INDICATION
     Dosage: DOSAGE FORM  NOT SPECIFIED
     Route: 065
  8. COMBIVENT [Suspect]
     Active Substance: ALBUTEROL SULFATE\IPRATROPIUM BROMIDE
     Indication: PRODUCT USED FOR UNKNOWN INDICATION
     Dosage: DOSAGE FORM: SOLUTION INHALATION, 2 DOSAGE FORM 4 EVERY 1 DAYS
     Route: 065
  9. FLOVENT [Suspect]
     Active Substance: FLUTICASONE PROPIONATE
     Indication: PRODUCT USED FOR UNKNOWN INDICATION
     Dosage: DOSAGE FORM: NOT SPECIFIED
     Route: 065
  10. ALVESCO [Suspect]
     Active Substance: CICLESONIDE
     Indication: PRODUCT USED FOR UNKNOWN INDICATION
     Dosage: 2 DOSAGE FORMS 2 EVERY 1 DAYS
  11. SPIRIVA [Suspect]
     Active Substance: TIOTROPIUM BROMIDE MONOHYDRATE
     Indication: PRODUCT USED FOR UNKNOWN INDICATION
     Dosage: 2.0 DOSAGE FORMS 1 EVERY 1 DAYS
  12. SYMBICORT [Suspect]
     Active Substance: BUDESONIDE\FORMOTEROL FUMARATE DIHYDRATE
     Indication: PRODUCT USED FOR UNKNOWN INDICATION
     Dosage: 2.0 DOSAGE FORMS 2 EVERY 1 DAYS

REACTIONS (21)
  - Haemoptysis [Recovered/Resolved]
  - Lymphadenopathy [Recovered/Resolved]
  - Loss of personal independence in daily activities [Recovered/Resolved]
  - Blood count abnormal [Recovered/Resolved]
  - Pain [Recovered/Resolved]
  - Sleep disorder [Recovered/Resolved]
  - Asthma [Recovered/Resolved]
  - Eye swelling [Recovered/Resolved]
  - Kidney infection [Recovered/Resolved]
  - Productive cough [Recovered/Resolved]
  - Wheezing [Recovered/Resolved]
  - Cough [Recovered/Resolved]
  - Haemorrhage [Recovered/Resolved]
  - Peripheral swelling [Recovered/Resolved]
  - Therapeutic product effect incomplete [Recovered/Resolved]
  - Weight decreased [Recovered/Resolved]
  - Night sweats [Recovered/Resolved]
  - Rash erythematous [Recovered/Resolved]
  - Breath sounds abnormal [Recovered/Resolved]
  - Chest discomfort [Recovered/Resolved]
  - Cystitis [Recovered/Resolved]
